FAERS Safety Report 9236937 (Version 1)
Quarter: 2013Q2

REPORT INFORMATION
  Report Type: Spontaneous
  Country: DE (occurrence: DE)
  Receive Date: 20130417
  Receipt Date: 20130417
  Transmission Date: 20140414
  Serious: Yes (Hospitalization)
  Sender: FDA-Public Use
  Company Number: GXKR2013DE001433

PATIENT
  Sex: Male
  Weight: 83 kg

DRUGS (5)
  1. VALSARTAN [Suspect]
     Indication: HYPERTENSION
     Dosage: 80 MG, QD
     Route: 048
     Dates: start: 20120621, end: 20120622
  2. BISOPROLOL [Suspect]
     Indication: ATRIAL FIBRILLATION
     Dosage: 2.5 MG, QD
     Route: 048
     Dates: start: 20120621, end: 20120622
  3. JODETTEN ^HENNING^ [Concomitant]
     Indication: GOITRE
     Dosage: 1 DF, QW
     Route: 048
  4. ATORVASTATIN [Concomitant]
     Indication: HYPERLIPIDAEMIA
     Dosage: 20 MG, QD
     Route: 048
  5. ALLOPURINOL [Concomitant]
     Indication: HYPERURICAEMIA
     Dosage: 300 MG, QD
     Route: 048

REACTIONS (3)
  - Syncope [Recovered/Resolved]
  - Cold sweat [Recovered/Resolved]
  - Pulse absent [Recovered/Resolved]
